FAERS Safety Report 23017524 (Version 1)
Quarter: 2023Q4

REPORT INFORMATION
  Report Type: Other
  Country: AU (occurrence: AU)
  Receive Date: 20231003
  Receipt Date: 20231003
  Transmission Date: 20240110
  Serious: Yes (Other)
  Sender: FDA-Public Use
  Company Number: AU-ALEMBIC PHARMACUETICALS LIMITED-2023SCAL000746

PATIENT
  Age: 30 Year
  Sex: Male

DRUGS (9)
  1. DULOXETINE HYDROCHLORIDE [Interacting]
     Active Substance: DULOXETINE HYDROCHLORIDE
     Indication: Product used for unknown indication
     Dosage: UNK
  2. CITALOPRAM [Interacting]
     Active Substance: CITALOPRAM HYDROBROMIDE
     Indication: Product used for unknown indication
  3. COLCHICINE [Interacting]
     Active Substance: COLCHICINE
     Indication: Product used for unknown indication
  4. DIAZEPAM [Interacting]
     Active Substance: DIAZEPAM
     Indication: Product used for unknown indication
  5. MIDAZOLAM [Interacting]
     Active Substance: MIDAZOLAM
     Indication: Product used for unknown indication
  6. MORPHINE TARTRATE [Interacting]
     Active Substance: MORPHINE TARTRATE
     Indication: Product used for unknown indication
  7. OXYCODONE [Interacting]
     Active Substance: OXYCODONE
     Indication: Product used for unknown indication
  8. ACETAMINOPHEN [Interacting]
     Active Substance: ACETAMINOPHEN
     Indication: Product used for unknown indication
  9. ZOPICLONE [Interacting]
     Active Substance: ZOPICLONE
     Indication: Product used for unknown indication

REACTIONS (5)
  - Brain death [Unknown]
  - Hepatic failure [Unknown]
  - Cardiomegaly [Unknown]
  - Toxicity to various agents [Unknown]
  - Drug interaction [Unknown]
